FAERS Safety Report 6083313-X (Version None)
Quarter: 2009Q1

REPORT INFORMATION
  Report Type: 
  Country: None (occurrence: None)
  Receive Date: 20090213
  Receipt Date: 20090213
  Transmission Date: 20090719
  Serious: Yes (Other)
  Sender: FDA-Public Use
  Company Number: None

PATIENT
  Age: 40 Year
  Sex: Female
  Weight: 80.7403 kg

DRUGS (1)
  1. SULFAMETHOXZOLE-TM P NONE LABELED NONE LABELED, GENERIC BACTRIM [Suspect]
     Indication: SINUSITIS
     Dosage: 1 TABLET 2 BID PO
     Route: 048
     Dates: start: 20090202, end: 20090209

REACTIONS (7)
  - DYSPNOEA EXERTIONAL [None]
  - INSOMNIA [None]
  - PHOTOSENSITIVITY REACTION [None]
  - PRODUCT CONTAMINATION [None]
  - PRODUCT QUALITY ISSUE [None]
  - PRURITUS [None]
  - RASH GENERALISED [None]
